FAERS Safety Report 4283750-X (Version None)
Quarter: 2004Q1

REPORT INFORMATION
  Report Type: 
  Country: None (occurrence: None)
  Receive Date: 20040130
  Receipt Date: 20040130
  Transmission Date: 20041129
  Serious: No
  Sender: FDA-Public Use
  Company Number: None

PATIENT
  Age: 39 Year
  Sex: Female
  Weight: 68.0396 kg

DRUGS (1)
  1. ZOLOFT [Suspect]
     Indication: DEPRESSION
     Dosage: 75 MGS ONCE A DAY ORAL
     Route: 048
     Dates: start: 20031117, end: 20040129

REACTIONS (9)
  - AMNESIA [None]
  - DYSARTHRIA [None]
  - FLATULENCE [None]
  - GASTROINTESTINAL DISORDER [None]
  - HEADACHE [None]
  - NIGHT SWEATS [None]
  - PRURITUS [None]
  - SUICIDAL IDEATION [None]
  - WEIGHT INCREASED [None]
